FAERS Safety Report 8513774-5 (Version None)
Quarter: 2012Q3

REPORT INFORMATION
  Report Type: 
  Country: None (occurrence: None)
  Receive Date: 20120705
  Receipt Date: 20120625
  Transmission Date: 20120928
  Serious: Yes (Other)
  Sender: FDA-Public Use
  Company Number: 2012060132

PATIENT
  Sex: Male

DRUGS (1)
  1. SOMA [Suspect]
     Indication: FIBROMYALGIA
     Dates: start: 20090101

REACTIONS (1)
  - NEOPLASM MALIGNANT [None]
